FAERS Safety Report 8298721-6 (Version None)
Quarter: 2012Q2

REPORT INFORMATION
  Report Type: 
  Country: None (occurrence: None)
  Receive Date: 20120419
  Receipt Date: 20120412
  Transmission Date: 20120825
  Serious: Yes (Death, Life-Threatening, Other)
  Sender: FDA-Public Use
  Company Number: CA-ROXANE LABORATORIES, INC.-2012-RO-01056RO

PATIENT
  Age: 4 Year
  Sex: Male
  Weight: 28 kg

DRUGS (1)
  1. CODEINE SUL TAB [Suspect]
     Indication: PROCEDURAL PAIN

REACTIONS (4)
  - TOXICITY TO VARIOUS AGENTS [None]
  - CONDITION AGGRAVATED [None]
  - BRONCHOPNEUMONIA [None]
  - RESPIRATORY ARREST [None]
